FAERS Safety Report 7353053-5 (Version None)
Quarter: 2011Q1

REPORT INFORMATION
  Report Type: 
  Country: None (occurrence: None)
  Receive Date: 20110315
  Receipt Date: 20110303
  Transmission Date: 20110831
  Serious: Yes (Hospitalization)
  Sender: FDA-Public Use
  Company Number: B0699978A

PATIENT
  Age: 45 Year
  Sex: Male

DRUGS (5)
  1. AVANDIA [Suspect]
     Indication: DIABETES MELLITUS
     Dosage: 4MG TWICE PER DAY
     Route: 048
     Dates: start: 20020124, end: 20060906
  2. INSULIN [Concomitant]
  3. LIPITOR [Concomitant]
  4. GLUCOPHAGE [Concomitant]
  5. AMARYL [Concomitant]

REACTIONS (3)
  - AMNESIA [None]
  - DYSTONIA [None]
  - CEREBROVASCULAR ACCIDENT [None]
